FAERS Safety Report 17302566 (Version 3)
Quarter: 2020Q2

REPORT INFORMATION
  Report Type: Report from Study
  Country: None (occurrence: DK)
  Receive Date: 20200122
  Receipt Date: 20200515
  Transmission Date: 20200713
  Serious: Yes (Hospitalization)
  Sender: FDA-Public Use
  Company Number: DK-ABBVIE-20P-044-3232474-00

PATIENT
  Age: 84 Year
  Sex: Male

DRUGS (23)
  1. SIMVASTATIN. [Concomitant]
     Active Substance: SIMVASTATIN
     Indication: HYPERCHOLESTEROLAEMIA
     Route: 065
     Dates: start: 20111221
  2. TICAGRELOR. [Concomitant]
     Active Substance: TICAGRELOR
     Indication: THROMBOSIS PROPHYLAXIS
     Route: 065
     Dates: start: 20161230
  3. MABLET [Concomitant]
     Indication: MINERAL SUPPLEMENTATION
     Route: 065
     Dates: start: 20200117
  4. VENETOCLAX. [Suspect]
     Active Substance: VENETOCLAX
     Route: 048
     Dates: start: 20190725, end: 20190731
  5. VENETOCLAX. [Suspect]
     Active Substance: VENETOCLAX
     Route: 048
     Dates: start: 20190808, end: 20200112
  6. RITUXIMAB. [Suspect]
     Active Substance: RITUXIMAB
     Indication: CHRONIC LYMPHOCYTIC LEUKAEMIA
     Dosage: 1 IN 28 DAYS
     Route: 042
     Dates: start: 20150713, end: 20150713
  7. RITUXIMAB. [Suspect]
     Active Substance: RITUXIMAB
     Dosage: 1 IN 28 DAYS
     Route: 042
     Dates: start: 20150810, end: 20151130
  8. RITUXIMAB. [Suspect]
     Active Substance: RITUXIMAB
     Dosage: 1 IN 28 DAYS
     Route: 042
     Dates: start: 20190808, end: 20190808
  9. RITUXIMAB. [Suspect]
     Active Substance: RITUXIMAB
     Dosage: 1 IN 28 DAYS
     Route: 042
     Dates: start: 20190905, end: 20200107
  10. VENETOCLAX. [Suspect]
     Active Substance: VENETOCLAX
     Indication: CHRONIC LYMPHOCYTIC LEUKAEMIA
     Route: 048
     Dates: start: 20190703, end: 20190709
  11. BENDAMUSTINE [Suspect]
     Active Substance: BENDAMUSTINE
     Indication: CHRONIC LYMPHOCYTIC LEUKAEMIA
     Dosage: DAYS 1 AND 2 OF EACH 28 DAY CYCLE
     Route: 042
     Dates: start: 20150713, end: 20151201
  12. ALLOPURINOL. [Concomitant]
     Active Substance: ALLOPURINOL
     Indication: PROPHYLAXIS
     Route: 065
     Dates: start: 20190702, end: 20190711
  13. ASPIRIN. [Concomitant]
     Active Substance: ASPIRIN
     Indication: THROMBOSIS PROPHYLAXIS
     Route: 065
     Dates: start: 20111221
  14. DEXAMETHASON AND TOBRAMYCIN [Concomitant]
     Indication: OTOSCLEROSIS
     Route: 065
     Dates: start: 20161208
  15. KALIUMKLORID [Concomitant]
     Indication: HYPOKALAEMIA
     Route: 065
     Dates: start: 20191222
  16. MAGNESIA [Concomitant]
     Active Substance: MAGNESIUM HYDROXIDE
     Indication: CONSTIPATION
     Route: 065
     Dates: start: 20150916
  17. TOILAX [Concomitant]
     Active Substance: BISACODYL
     Indication: CONSTIPATION
     Route: 065
     Dates: start: 20191031
  18. GLYCERLNITRAT [Concomitant]
     Indication: AORTIC ARTERIOSCLEROSIS
     Route: 065
     Dates: start: 20141104
  19. ELIQUIS [Concomitant]
     Active Substance: APIXABAN
     Indication: CEREBROVASCULAR ACCIDENT PROPHYLAXIS
     Route: 065
     Dates: start: 20200102
  20. VENETOCLAX. [Suspect]
     Active Substance: VENETOCLAX
     Route: 048
     Dates: start: 20190710, end: 20190717
  21. VENETOCLAX. [Suspect]
     Active Substance: VENETOCLAX
     Route: 048
     Dates: start: 20190718, end: 20190724
  22. FINASTERID [Concomitant]
     Active Substance: FINASTERIDE
     Indication: BENIGN PROSTATIC HYPERPLASIA
     Route: 065
     Dates: start: 20111221
  23. NEPAFENAC [Concomitant]
     Active Substance: NEPAFENAC
     Indication: OTOSCLEROSIS
     Route: 065
     Dates: start: 20161208

REACTIONS (1)
  - Pneumonia [Recovered/Resolved]

NARRATIVE: CASE EVENT DATE: 20200111
